FAERS Safety Report 25362670 (Version 1)
Quarter: 2025Q2

REPORT INFORMATION
  Report Type: Spontaneous
  Country: US (occurrence: US)
  Receive Date: 20250527
  Receipt Date: 20250527
  Transmission Date: 20250716
  Serious: No
  Sender: BAUSCH AND LOMB
  Company Number: US-BAUSCHBL-2025BNL009072

PATIENT
  Age: 75 Year
  Sex: Male

DRUGS (2)
  1. ALAWAY [Suspect]
     Active Substance: KETOTIFEN FUMARATE
     Indication: Ocular discomfort
     Route: 065
     Dates: start: 20250519
  2. SYSTANE COMPLETE [Concomitant]
     Active Substance: PROPYLENE GLYCOL
     Indication: Dry eye

REACTIONS (7)
  - Lacrimation increased [Unknown]
  - Eye irritation [Unknown]
  - Eye pain [Unknown]
  - Exposure via skin contact [Unknown]
  - Product complaint [Unknown]
  - Accidental exposure to product [Unknown]
  - Circumstance or information capable of leading to medication error [Unknown]

NARRATIVE: CASE EVENT DATE: 20250501
